FAERS Safety Report 4810126-6 (Version None)
Quarter: 2005Q4

REPORT INFORMATION
  Report Type: 
  Country: None (occurrence: None)
  Receive Date: 20051026
  Receipt Date: 20051018
  Transmission Date: 20060501
  Serious: Yes (Death, Other)
  Sender: FDA-Public Use
  Company Number: JP-JNJFOC-20050701617

PATIENT
  Sex: Female

DRUGS (13)
  1. ITRIZOLE [Suspect]
     Indication: PNEUMONIA ASPERGILLUS
     Route: 048
     Dates: start: 20050426, end: 20050519
  2. VELCADE [Suspect]
     Route: 042
  3. VELCADE [Suspect]
     Route: 042
  4. VELCADE [Suspect]
     Route: 042
  5. VELCADE [Suspect]
     Route: 042
  6. VELCADE [Suspect]
     Route: 042
  7. VELCADE [Suspect]
     Route: 042
  8. VELCADE [Suspect]
     Route: 042
  9. VELCADE [Suspect]
     Indication: MULTIPLE MYELOMA
     Route: 042
  10. ACYCLOVIR [Concomitant]
     Indication: SECONDARY IMMUNODEFICIENCY
     Route: 048
     Dates: start: 20050426, end: 20050520
  11. VALSARTAN [Concomitant]
     Indication: HYPERTENSION
     Route: 048
     Dates: start: 20050426, end: 20050520
  12. AMLODIPINE [Concomitant]
     Indication: HYPERTENSION
     Route: 048
     Dates: start: 20050426, end: 20050520
  13. INSULIN LISPRO [Concomitant]
     Route: 058
     Dates: start: 20050426, end: 20050520

REACTIONS (3)
  - ASPERGILLOSIS [None]
  - PNEUMONIA [None]
  - SEPSIS [None]
